FAERS Safety Report 23969323 (Version 1)
Quarter: 2024Q2

REPORT INFORMATION
  Report Type: Spontaneous
  Country: US (occurrence: US)
  Receive Date: 20240612
  Receipt Date: 20240612
  Transmission Date: 20240715
  Serious: No
  Sender: FDA-Public Use
  Company Number: US-BAUSCHBL-2024BNL028219

PATIENT
  Age: 76 Year
  Sex: Female

DRUGS (5)
  1. HYDROCORTISONE\NEOMYCIN SULFATE\POLYMYXIN B SULFATE [Suspect]
     Active Substance: HYDROCORTISONE\NEOMYCIN SULFATE\POLYMYXIN B SULFATE
     Indication: Scar
     Dosage: 4 DROPS IN EACH EAR 3 TIMES A DAY
     Route: 001
     Dates: start: 20240517, end: 20240528
  2. HYDROCORTISONE\NEOMYCIN SULFATE\POLYMYXIN B SULFATE [Suspect]
     Active Substance: HYDROCORTISONE\NEOMYCIN SULFATE\POLYMYXIN B SULFATE
     Indication: Ear infection fungal
  3. ERYTHROMYCIN [Suspect]
     Active Substance: ERYTHROMYCIN
     Indication: Product used for unknown indication
     Route: 065
  4. DICLOFENAC SODIUM [Concomitant]
     Active Substance: DICLOFENAC\DICLOFENAC SODIUM
     Indication: Product used for unknown indication
  5. IBUPROFEN [Concomitant]
     Active Substance: IBUPROFEN
     Indication: Product used for unknown indication
     Dosage: 2 TABLETS A DAY

REACTIONS (14)
  - Eustachian tube obstruction [Unknown]
  - Sinus disorder [Unknown]
  - Lymphadenopathy [Unknown]
  - Vision blurred [Unknown]
  - Photosensitivity reaction [Unknown]
  - Hypoacusis [Unknown]
  - Pyrexia [Unknown]
  - Rhinorrhoea [Unknown]
  - Visual impairment [Unknown]
  - Ear disorder [Unknown]
  - Urticaria [Unknown]
  - Rhinalgia [Unknown]
  - Hyperhidrosis [Unknown]
  - Drug hypersensitivity [Unknown]

NARRATIVE: CASE EVENT DATE: 20240501
